FAERS Safety Report 14949659 (Version 4)
Quarter: 2018Q3

REPORT INFORMATION
  Report Type: Report from Study
  Country: None (occurrence: NL)
  Receive Date: 20180529
  Receipt Date: 20180904
  Transmission Date: 20181010
  Serious: Yes (Other)
  Sender: FDA-Public Use
  Company Number: NL-ABBVIE-16K-114-1715662-00

PATIENT
  Sex: Male
  Weight: 72 kg

DRUGS (7)
  1. DUODOPA [Suspect]
     Active Substance: CARBIDOPA\LEVODOPA
     Dosage: EXTRA DOSE DECREASED
     Route: 050
  2. MELATONINE [Concomitant]
     Active Substance: MELATONIN
     Indication: PRODUCT USED FOR UNKNOWN INDICATION
  3. DUODOPA [Suspect]
     Active Substance: CARBIDOPA\LEVODOPA
     Indication: PARKINSON^S DISEASE
     Dosage: MD: 10.5 CD: 3.1 ED: 4.0
     Route: 050
     Dates: start: 20140514
  4. DUODOPA [Suspect]
     Active Substance: CARBIDOPA\LEVODOPA
     Dosage: INCREASED CONTINUOUS DOSE
     Route: 050
  5. DUODOPA [Suspect]
     Active Substance: CARBIDOPA\LEVODOPA
     Dosage: CONTINUOUS DOSE DECREASED TO 3.0
     Route: 050
  6. DUODOPA [Suspect]
     Active Substance: CARBIDOPA\LEVODOPA
     Dosage: DOSAGE: MD 10.5 ML CD 3.1 ML/HR ED 4.0 ML
     Route: 050
  7. DUODOPA [Suspect]
     Active Substance: CARBIDOPA\LEVODOPA
     Dosage: CD 3.1
     Route: 050

REACTIONS (18)
  - Balance disorder [Not Recovered/Not Resolved]
  - Medical device site discolouration [Unknown]
  - Speech disorder [Not Recovered/Not Resolved]
  - General physical health deterioration [Unknown]
  - Fall [Not Recovered/Not Resolved]
  - Middle insomnia [Recovered/Resolved]
  - Anaemia [Not Recovered/Not Resolved]
  - Gait disturbance [Not Recovered/Not Resolved]
  - Dyskinesia [Not Recovered/Not Resolved]
  - Squamous cell carcinoma of skin [Recovered/Resolved]
  - Memory impairment [Not Recovered/Not Resolved]
  - Micturition disorder [Unknown]
  - Fatigue [Not Recovered/Not Resolved]
  - Freezing phenomenon [Not Recovered/Not Resolved]
  - On and off phenomenon [Recovered/Resolved]
  - Diarrhoea [Recovered/Resolved]
  - Hyperkinesia [Recovering/Resolving]
  - Hallucination [Recovered/Resolved]
